FAERS Safety Report 10035435 (Version 2)
Quarter: 2014Q1

REPORT INFORMATION
  Report Type: Spontaneous
  Country: FR (occurrence: FR)
  Receive Date: 20140325
  Receipt Date: 20140328
  Transmission Date: 20141002
  Serious: Yes (Disabling)
  Sender: FDA-Public Use
  Company Number: FR-ASTRAZENECA-2014SE19900

PATIENT
  Sex: Male

DRUGS (16)
  1. XEROQUEL [Suspect]
     Indication: DEPRESSION
     Route: 048
     Dates: end: 201312
  2. XEROQUEL [Interacting]
     Indication: INSOMNIA
     Route: 048
     Dates: end: 201312
  3. XEROQUEL [Interacting]
     Indication: DEPRESSION
     Route: 048
     Dates: start: 201312, end: 20140312
  4. XEROQUEL [Interacting]
     Indication: INSOMNIA
     Route: 048
     Dates: start: 201312, end: 20140312
  5. INEGY [Interacting]
     Indication: HYPERCHOLESTEROLAEMIA
     Route: 048
     Dates: start: 201309
  6. METFORMINE [Concomitant]
     Indication: DIABETES MELLITUS
     Route: 048
  7. DIAMICRON [Concomitant]
     Indication: DIABETES MELLITUS
     Route: 048
  8. PLAVIX [Concomitant]
     Route: 048
     Dates: start: 201309
  9. ONBREZ [Concomitant]
     Route: 055
     Dates: start: 2012
  10. PERMIXON [Concomitant]
     Route: 048
     Dates: start: 2012
  11. VESICARE [Concomitant]
     Route: 048
  12. LYRICA [Concomitant]
     Indication: PAIN IN EXTREMITY
     Route: 048
     Dates: start: 201309
  13. LYRICA [Concomitant]
     Indication: PAIN IN EXTREMITY
     Route: 048
  14. CYMBALTA [Concomitant]
     Dosage: FOR LONG TIME
     Route: 048
  15. NOCTAMIDE [Concomitant]
     Dosage: FOR LONG TIME
     Route: 048
  16. COAPROVEL [Concomitant]
     Route: 048

REACTIONS (6)
  - Drug interaction [Recovered/Resolved]
  - Pain in extremity [Recovered/Resolved]
  - Gait disturbance [Recovered/Resolved]
  - Drug dose omission [Recovered/Resolved]
  - Feeling drunk [Recovered/Resolved]
  - Lumbar spinal stenosis [Unknown]
